FAERS Safety Report 12770161 (Version 2)
Quarter: 2016Q4

REPORT INFORMATION
  Report Type: Spontaneous
  Country: US (occurrence: US)
  Receive Date: 20160922
  Receipt Date: 20161213
  Transmission Date: 20170207
  Serious: No
  Sender: FDA-Public Use
  Company Number: US-PFIZER INC-2016438314

PATIENT
  Age: 73 Year
  Sex: Female
  Weight: 114.7 kg

DRUGS (2)
  1. IBRANCE [Suspect]
     Active Substance: PALBOCICLIB
     Indication: BREAST CANCER METASTATIC
     Dosage: 125 MG, CYCLIC (DAY 1-21 Q 28 DAYS)
     Route: 048
     Dates: start: 20160902, end: 20160906
  2. IBRANCE [Suspect]
     Active Substance: PALBOCICLIB
     Dosage: 125 MG, CYCLIC (DAYS 1-21 Q 28 DAYS)
     Route: 048
     Dates: start: 20160902

REACTIONS (4)
  - Musculoskeletal pain [Unknown]
  - Disease progression [Unknown]
  - Fatigue [Unknown]
  - Breast cancer [Unknown]

NARRATIVE: CASE EVENT DATE: 20160906
